FAERS Safety Report 5096823-9 (Version None)
Quarter: 2006Q3

REPORT INFORMATION
  Report Type: 
  Country: None (occurrence: None)
  Receive Date: 20060831
  Receipt Date: 20060817
  Transmission Date: 20061208
  Serious: Yes (Hospitalization, Other)
  Sender: FDA-Public Use
  Company Number: US-2006-023814

PATIENT
  Age: 79 Year
  Sex: Male
  Weight: 64 kg

DRUGS (5)
  1. MAGNEVIST [Suspect]
     Indication: ANGIOGRAM
     Dosage: 1 DOSE
     Dates: start: 20060807, end: 20060807
  2. BETAPACE [Concomitant]
  3. ALLOPURINOL [Concomitant]
  4. HYDRALAZINE HCL [Concomitant]
  5. PROCARDIA [Concomitant]

REACTIONS (10)
  - ABASIA [None]
  - ANAEMIA [None]
  - BLOOD PRESSURE DECREASED [None]
  - CARDIAC FAILURE [None]
  - CONTRAST MEDIA REACTION [None]
  - GOUT [None]
  - INFLUENZA LIKE ILLNESS [None]
  - REFUSAL OF TREATMENT BY PATIENT [None]
  - RENAL FAILURE [None]
  - SLEEP DISORDER [None]
